FAERS Safety Report 18124686 (Version 1)
Quarter: 2020Q3

REPORT INFORMATION
  Report Type: Spontaneous
  Country: BE (occurrence: BE)
  Receive Date: 20200807
  Receipt Date: 20200807
  Transmission Date: 20201103
  Serious: Yes (Hospitalization)
  Sender: FDA-Public Use
  Company Number: BE-MYLANLABS-2020M1070366

PATIENT
  Age: 53 Year
  Sex: Female

DRUGS (15)
  1. VORICONAZOLE. [Suspect]
     Active Substance: VORICONAZOLE
     Dosage: INITIALLY CONTINUED
     Route: 061
  2. OFLOXACIN. [Concomitant]
     Active Substance: OFLOXACIN
     Indication: KERATITIS
     Dosage: UNK
     Route: 061
  3. GANCICLOVIR. [Concomitant]
     Active Substance: GANCICLOVIR
     Indication: HERPES OPHTHALMIC
     Dosage: UNK
     Route: 061
  4. MOXIFLOXACIN. [Concomitant]
     Active Substance: MOXIFLOXACIN
     Indication: HERPES OPHTHALMIC
     Dosage: DROPS
     Route: 065
  5. CEFAZOLIN [Concomitant]
     Active Substance: CEFAZOLIN
     Indication: KERATITIS
     Dosage: HOURLY 50 MG/ML DAY AND NIGHT
     Route: 061
  6. DOXYCYCLINE. [Suspect]
     Active Substance: DOXYCYCLINE
     Indication: KERATITIS FUNGAL
     Dosage: 200 MILLIGRAM, QD
     Route: 065
  7. VORICONAZOLE. [Suspect]
     Active Substance: VORICONAZOLE
     Indication: KERATITIS FUNGAL
     Dosage: 10MG/ML HOURLY DAY AND NIGHT
     Route: 061
  8. ITRACONAZOLE. [Suspect]
     Active Substance: ITRACONAZOLE
     Indication: KERATITIS FUNGAL
     Dosage: 400 MILLIGRAM, QD
     Route: 048
  9. TOBRAMYCIN. [Concomitant]
     Active Substance: TOBRAMYCIN
     Indication: KERATITIS
     Dosage: HOURLY 14 MG/ML DAY AND NIGHT
     Route: 061
  10. VALACICLOVIR [Concomitant]
     Active Substance: VALACYCLOVIR HYDROCHLORIDE
     Dosage: INITIALLY CONTINUED
     Route: 048
  11. VALACICLOVIR [Concomitant]
     Active Substance: VALACYCLOVIR HYDROCHLORIDE
     Dosage: THEN SLOWLY TAPERED FOLLOWING SURGERY
     Route: 048
  12. DEXAMETHASONE. [Concomitant]
     Active Substance: DEXAMETHASONE
     Indication: HERPES OPHTHALMIC
     Dosage: DROPS
     Route: 061
  13. VALACICLOVIR [Concomitant]
     Active Substance: VALACYCLOVIR HYDROCHLORIDE
     Indication: HERPES OPHTHALMIC
     Dosage: 1500 MILLIGRAM, QD
     Route: 048
  14. VORICONAZOLE. [Suspect]
     Active Substance: VORICONAZOLE
     Dosage: THEN TAPERED OFF FOLLOWING SURGERY
     Route: 061
  15. INDOMETHACIN                       /00003801/ [Suspect]
     Active Substance: INDOMETHACIN
     Indication: KERATITIS
     Dosage: UNK
     Route: 065

REACTIONS (2)
  - Drug ineffective [Unknown]
  - Corneal perforation [Recovered/Resolved]
